FAERS Safety Report 9191305 (Version 2)
Quarter: 2013Q2

REPORT INFORMATION
  Report Type: Report from Study
  Country: US (occurrence: US)
  Receive Date: 20130326
  Receipt Date: 20130408
  Transmission Date: 20140414
  Serious: Yes (Hospitalization, Other)
  Sender: FDA-Public Use
  Company Number: US-PURDUE-USA-2013-0100050

PATIENT
  Age: 84 Year
  Sex: Female

DRUGS (4)
  1. OXYCONTIN [Suspect]
     Indication: PAIN
     Dosage: 20 MG, Q8H
     Route: 048
     Dates: end: 20130319
  2. OXYCONTIN [Suspect]
     Dosage: 40 MG, Q8H
     Route: 048
  3. OXYCONTIN [Suspect]
     Dosage: 30 MG, UNK
     Route: 048
  4. NEXIUM [Suspect]
     Indication: PRODUCT USED FOR UNKNOWN INDICATION
     Dosage: 50 MG, DAILY
     Route: 048

REACTIONS (5)
  - Compression fracture [Not Recovered/Not Resolved]
  - Multiple fractures [Not Recovered/Not Resolved]
  - Bedridden [Recovered/Resolved]
  - Pain [Unknown]
  - Lumbar vertebral fracture [None]
